FAERS Safety Report 6267472-1 (Version None)
Quarter: 2009Q3

REPORT INFORMATION
  Report Type: 
  Country: None (occurrence: None)
  Receive Date: 20090714
  Receipt Date: 20090706
  Transmission Date: 20100115
  Serious: Yes (Other)
  Sender: FDA-Public Use
  Company Number: US-AVENTIS-200915927US

PATIENT
  Age: 80 Year
  Sex: Female

DRUGS (2)
  1. LANTUS [Suspect]
     Indication: TYPE 2 DIABETES MELLITUS
     Dosage: DOSE: 58-60
     Route: 058
  2. CARDIOVASCULAR SYSTEM DRUGS [Concomitant]
     Dosage: DOSE: UNK

REACTIONS (4)
  - HYPOGLYCAEMIC UNCONSCIOUSNESS [None]
  - INJECTION SITE NODULE [None]
  - INJECTION SITE PAIN [None]
  - WEIGHT INCREASED [None]
